FAERS Safety Report 25678541 (Version 1)
Quarter: 2025Q3

REPORT INFORMATION
  Report Type: Spontaneous
  Country: LR (occurrence: LR)
  Receive Date: 20250813
  Receipt Date: 20250813
  Transmission Date: 20251020
  Serious: Yes (Other)
  Sender: PURDUE
  Company Number: LR-NAPPMUNDI-GBR-2025-0127914

PATIENT

DRUGS (1)
  1. METHYLPHENIDATE HYDROCHLORIDE [Suspect]
     Active Substance: METHYLPHENIDATE HYDROCHLORIDE
     Indication: Attention deficit hyperactivity disorder
     Route: 065

REACTIONS (2)
  - Drug use disorder [Unknown]
  - Intentional product misuse [Unknown]
